FAERS Safety Report 24554151 (Version 4)
Quarter: 2025Q1

REPORT INFORMATION
  Report Type: Report from Study
  Country: US (occurrence: US)
  Receive Date: 20241028
  Receipt Date: 20250123
  Transmission Date: 20250409
  Serious: Yes (Hospitalization, Other)
  Sender: ABBVIE
  Company Number: US-ABBVIE-5978624

PATIENT
  Age: 54 Year
  Sex: Female
  Weight: 120.65 kg

DRUGS (1)
  1. SKYRIZI [Suspect]
     Active Substance: RISANKIZUMAB-RZAA
     Indication: Crohn^s disease
     Route: 058
     Dates: start: 2024

REACTIONS (8)
  - Intestinal perforation [Not Recovered/Not Resolved]
  - Dysstasia [Recovered/Resolved]
  - Feeding disorder [Recovered/Resolved]
  - Diarrhoea [Not Recovered/Not Resolved]
  - Hypokinesia [Recovered/Resolved]
  - Vomiting [Recovered/Resolved]
  - Abdominal pain [Recovering/Resolving]
  - Fluid intake reduced [Recovered/Resolved]

NARRATIVE: CASE EVENT DATE: 20240701
